FAERS Safety Report 6972830-3 (Version None)
Quarter: 2010Q3

REPORT INFORMATION
  Report Type: 
  Country: None (occurrence: None)
  Receive Date: 20100907
  Receipt Date: 20100825
  Transmission Date: 20110219
  Serious: Yes (Hospitalization)
  Sender: FDA-Public Use
  Company Number: PERL20100005

PATIENT
  Age: 46 Year
  Sex: Male

DRUGS (4)
  1. PERCOLONE (OXYCODONE) (TABLETS) [Suspect]
     Indication: BACK PAIN
     Dosage: 350 MG, ONCE, ORAL
     Route: 048
  2. OXYCONTIN (OXYCODONE HYDROCHLORIDE) (CAPSULES) [Suspect]
     Indication: BACK PAIN
     Dosage: 400 MG, ONCE, ORAL
     Route: 048
  3. SOMA [Suspect]
     Indication: PRODUCT USED FOR UNKNOWN INDICATION
     Dosage: 1050 MG, ONCE, ORAL
     Route: 048
  4. VALIUM (DIAZEPAM) (PILL) [Suspect]
     Indication: PRODUCT USED FOR UNKNOWN INDICATION
     Dosage: TWO PILLS ONCE, ORAL
     Route: 048

REACTIONS (21)
  - AGITATION [None]
  - ATAXIA [None]
  - BRAIN OEDEMA [None]
  - CEREBELLAR SYNDROME [None]
  - COORDINATION ABNORMAL [None]
  - DELIRIUM [None]
  - DEPRESSED LEVEL OF CONSCIOUSNESS [None]
  - DISORIENTATION [None]
  - DRUG SCREEN POSITIVE [None]
  - DRUG TOXICITY [None]
  - DRUG WITHDRAWAL SYNDROME [None]
  - DYSARTHRIA [None]
  - FALL [None]
  - GRAND MAL CONVULSION [None]
  - HYDROCEPHALUS [None]
  - INTRACRANIAL PRESSURE INCREASED [None]
  - LEUKOENCEPHALOPATHY [None]
  - MOTOR DYSFUNCTION [None]
  - OVERDOSE [None]
  - RESPIRATORY DEPRESSION [None]
  - UNRESPONSIVE TO STIMULI [None]
